FAERS Safety Report 7064033-1 (Version None)
Quarter: 2010Q4

REPORT INFORMATION
  Report Type: 
  Country: None (occurrence: None)
  Receive Date: 20101026
  Receipt Date: 20101019
  Transmission Date: 20110411
  Serious: No
  Sender: FDA-Public Use
  Company Number: US-ABBOTT-10P-163-0679732-00

PATIENT
  Sex: Female

DRUGS (1)
  1. LUPRON [Suspect]
     Indication: PRODUCT USED FOR UNKNOWN INDICATION
     Dosage: ONE TIME DAILY BEFORE BED
     Route: 050

REACTIONS (4)
  - ABDOMINAL DISTENSION [None]
  - CYST [None]
  - IRRITABILITY [None]
  - UTERINE DISORDER [None]
